FAERS Safety Report 17756618 (Version 1)
Quarter: 2020Q2

REPORT INFORMATION
  Report Type: Spontaneous
  Country: US (occurrence: US)
  Receive Date: 20200507
  Receipt Date: 20200507
  Transmission Date: 20200714
  Serious: Yes (Hospitalization)
  Sender: FDA-Public Use
  Company Number: None

PATIENT
  Age: 56 Year
  Sex: Male
  Weight: 86 kg

DRUGS (1)
  1. ALPRAZOLAM (ALPRAZOLAM 1MG TAB,UD) [Suspect]
     Active Substance: ALPRAZOLAM
     Indication: ANXIETY
     Route: 048
     Dates: start: 20191010

REACTIONS (2)
  - Tremor [None]
  - Fall [None]

NARRATIVE: CASE EVENT DATE: 20191010
